FAERS Safety Report 21898516 (Version 2)
Quarter: 2023Q1

REPORT INFORMATION
  Report Type: Report from Study
  Country: NL (occurrence: NL)
  Receive Date: 20230123
  Receipt Date: 20230222
  Transmission Date: 20230418
  Serious: Yes (Hospitalization, Other)
  Sender: FDA-Public Use
  Company Number: NL-RECORDATI RARE DISEASE INC.-2023000249

PATIENT

DRUGS (2)
  1. SIGNIFOR LAR [Suspect]
     Active Substance: PASIREOTIDE PAMOATE
     Indication: Acromegaly
     Dosage: 60 MILLIGRAM, EVERY 4 WEEKS
     Route: 030
     Dates: start: 20180525
  2. SIGNIFOR LAR [Suspect]
     Active Substance: PASIREOTIDE PAMOATE
     Dosage: 60 MILLIGRAM, EVERY 4 WEEKS
     Route: 030
     Dates: start: 20221219

REACTIONS (2)
  - Pelvic inflammatory disease [Unknown]
  - Poisoning [Unknown]

NARRATIVE: CASE EVENT DATE: 20230101
